FAERS Safety Report 25202124 (Version 1)
Quarter: 2025Q2

REPORT INFORMATION
  Report Type: Spontaneous
  Country: US (occurrence: US)
  Receive Date: 20250416
  Receipt Date: 20250416
  Transmission Date: 20250716
  Serious: No
  Sender: ZYDUS PHARM
  Company Number: US-CADILA HEALTHCARE LIMITED-US-ZYDUS-121562

PATIENT

DRUGS (1)
  1. HYDROCHLOROTHIAZIDE\TRIAMTERENE [Suspect]
     Active Substance: HYDROCHLOROTHIAZIDE\TRIAMTERENE
     Indication: Hypertension
     Route: 048

REACTIONS (1)
  - Blood calcium increased [Not Recovered/Not Resolved]

NARRATIVE: CASE EVENT DATE: 20250301
